FAERS Safety Report 8010093-0 (Version None)
Quarter: 2011Q4

REPORT INFORMATION
  Report Type: 
  Country: None (occurrence: None)
  Receive Date: 20111228
  Receipt Date: 20111219
  Transmission Date: 20120403
  Serious: Yes (Congenital Anomaly, Other)
  Sender: FDA-Public Use
  Company Number: GB-BRISTOL-MYERS SQUIBB COMPANY-16308777

PATIENT
  Sex: Male
  Weight: 1 kg

DRUGS (1)
  1. METFORMIN HCL [Suspect]
     Route: 064

REACTIONS (1)
  - VITELLO-INTESTINAL DUCT REMNANT [None]
